FAERS Safety Report 6061852-5 (Version None)
Quarter: 2009Q1

REPORT INFORMATION
  Report Type: 
  Country: None (occurrence: None)
  Receive Date: 20090202
  Receipt Date: 20090126
  Transmission Date: 20090719
  Serious: Yes (Other)
  Sender: FDA-Public Use
  Company Number: US-ELI_LILLY_AND_COMPANY-US200901005056

PATIENT
  Sex: Male

DRUGS (3)
  1. BYETTA [Suspect]
  2. ACE INHIBITOR NOS [Concomitant]
  3. DIURETICS [Concomitant]

REACTIONS (1)
  - RENAL FAILURE ACUTE [None]
